FAERS Safety Report 4937467-6 (Version None)
Quarter: 2006Q1

REPORT INFORMATION
  Report Type: 
  Country: None (occurrence: None)
  Receive Date: 20060309
  Receipt Date: 20041109
  Transmission Date: 20060701
  Serious: Yes (Hospitalization)
  Sender: FDA-Public Use
  Company Number: PHHO2004US15953

PATIENT
  Age: 80 Year
  Sex: Male
  Weight: 77.3 kg

DRUGS (4)
  1. CALCIUM GLUCONATE [Concomitant]
     Indication: OSTEOPOROSIS PROPHYLAXIS
     Dosage: 500 MG, QD
     Route: 048
  2. VITAMIN D [Concomitant]
     Indication: OSTEOPOROSIS PROPHYLAXIS
     Dosage: 400-500 IU
     Route: 048
  3. METAGLIP [Concomitant]
     Indication: DIABETES MELLITUS
     Dosage: 500 MG, BID
     Route: 048
     Dates: start: 20020101
  4. ZOLEDRONIC ACID VS PLACEBO [Suspect]
     Indication: OSTEOPOROSIS PROPHYLAXIS
     Dosage: 4 MG, Q3MO
     Route: 042
     Dates: start: 20040114

REACTIONS (7)
  - ANAEMIA POSTOPERATIVE [None]
  - ARTERIAL BYPASS OPERATION [None]
  - CONCOMITANT DISEASE PROGRESSION [None]
  - METATARSAL EXCISION [None]
  - OSTEOMYELITIS [None]
  - PERIPHERAL VASCULAR DISORDER [None]
  - SKIN ULCER [None]
